FAERS Safety Report 8185629-X (Version None)
Quarter: 2012Q1

REPORT INFORMATION
  Report Type: 
  Country: None (occurrence: None)
  Receive Date: 20120305
  Receipt Date: 20120223
  Transmission Date: 20120608
  Serious: Yes (Hospitalization)
  Sender: FDA-Public Use
  Company Number: JP-ASTRAZENECA-2012SE13678

PATIENT
  Age: 82 Year
  Sex: Male
  Weight: 73 kg

DRUGS (7)
  1. ASPIRIN [Concomitant]
     Route: 065
     Dates: start: 20110707
  2. INDERAL [Concomitant]
     Route: 065
     Dates: start: 20110707, end: 20110716
  3. OMEPRAZOLE [Suspect]
     Indication: GASTRIC ULCER
     Route: 048
     Dates: start: 20110707, end: 20110718
  4. ISOSORBIDE MONONITRATE [Concomitant]
     Route: 065
     Dates: start: 20110707, end: 20110718
  5. ANSATUR [Concomitant]
     Route: 065
     Dates: start: 20110707, end: 20110718
  6. BISOPROLOL FUMARATE [Concomitant]
     Route: 065
     Dates: start: 20110717, end: 20110718
  7. OYPALOMIN 150 [Concomitant]
     Route: 065

REACTIONS (8)
  - RASH [None]
  - PYREXIA [None]
  - PRURITUS [None]
  - MALAISE [None]
  - C-REACTIVE PROTEIN INCREASED [None]
  - CHEST DISCOMFORT [None]
  - WHITE BLOOD CELL COUNT INCREASED [None]
  - DRUG ERUPTION [None]
